FAERS Safety Report 4812093-8 (Version None)
Quarter: 2005Q4

REPORT INFORMATION
  Report Type: 
  Country: None (occurrence: None)
  Receive Date: 20051028
  Receipt Date: 20021230
  Transmission Date: 20060501
  Serious: No
  Sender: FDA-Public Use
  Company Number: US-GLAXOSMITHKLINE-A0390248A

PATIENT
  Age: 43 Year
  Sex: Male

DRUGS (3)
  1. ADVAIR DISKUS 100/50 [Suspect]
     Indication: ASTHMA
     Route: 055
     Dates: start: 20010501
  2. SINGULAIR [Concomitant]
  3. THEOPHYLLINE [Concomitant]

REACTIONS (4)
  - DRY EYE [None]
  - EYE IRRITATION [None]
  - EYE PAIN [None]
  - HYPOSMIA [None]
